FAERS Safety Report 14756392 (Version 2)
Quarter: 2019Q1

REPORT INFORMATION
  Report Type: Spontaneous
  Country: US (occurrence: US)
  Receive Date: 20180413
  Receipt Date: 20190307
  Transmission Date: 20190417
  Serious: Yes (Hospitalization, Other)
  Sender: FDA-Public Use
  Company Number: US-ASTRAZENECA-2018SE44967

PATIENT
  Age: 15970 Day
  Sex: Female
  Weight: 77.8 kg

DRUGS (20)
  1. KOMBIGLYZE XR [Suspect]
     Active Substance: METFORMIN HYDROCHLORIDE\SAXAGLIPTIN HYDROCHLORIDE
     Indication: DIABETES MELLITUS
     Dosage: 5-1000 MG
     Route: 048
     Dates: start: 20151022
  2. HYDROCHLOROTHIAZIDE. [Concomitant]
     Active Substance: HYDROCHLOROTHIAZIDE
  3. INSULIN DETEMIR [Concomitant]
     Active Substance: INSULIN DETEMIR
  4. ENOXACIN [Concomitant]
     Active Substance: ENOXACIN
  5. CEFTRIAXONE SODIUM. [Concomitant]
     Active Substance: CEFTRIAXONE SODIUM
  6. KOMBIGLYZE XR [Suspect]
     Active Substance: METFORMIN HYDROCHLORIDE\SAXAGLIPTIN HYDROCHLORIDE
     Indication: DIABETES MELLITUS
     Route: 048
     Dates: start: 2013, end: 2017
  7. METOPROLOL TARTRATE. [Concomitant]
     Active Substance: METOPROLOL TARTRATE
  8. LEVETIRACETAM. [Concomitant]
     Active Substance: LEVETIRACETAM
  9. ASPIRIN. [Concomitant]
     Active Substance: ASPIRIN
  10. ONGLYZA [Suspect]
     Active Substance: SAXAGLIPTIN HYDROCHLORIDE
     Route: 048
     Dates: start: 2013, end: 2017
  11. FUROSEMIDE. [Concomitant]
     Active Substance: FUROSEMIDE
  12. ATORVASTATIN CALCIUM. [Concomitant]
     Active Substance: ATORVASTATIN CALCIUM
  13. FAMOTIDINE. [Concomitant]
     Active Substance: FAMOTIDINE
  14. KOMBIGLYZE XR [Suspect]
     Active Substance: METFORMIN HYDROCHLORIDE\SAXAGLIPTIN HYDROCHLORIDE
     Indication: DIABETES MELLITUS
     Dosage: GENERIC- 2.5/500 ONE TAB P.O. DAILY.
     Route: 065
     Dates: start: 20160712
  15. AZITHROMYCIN ANHYDROUS. [Concomitant]
     Active Substance: AZITHROMYCIN ANHYDROUS
  16. LISINOPRIL. [Concomitant]
     Active Substance: LISINOPRIL
  17. CLONIDINE. [Concomitant]
     Active Substance: CLONIDINE
  18. GUAIFENESIN. [Concomitant]
     Active Substance: GUAIFENESIN
  19. LEVOTHYROXINE SODIUM. [Concomitant]
     Active Substance: LEVOTHYROXINE SODIUM
  20. AMLODIPINE BESILATE [Concomitant]
     Active Substance: AMLODIPINE BESYLATE

REACTIONS (5)
  - Cardiovascular disorder [Unknown]
  - Cardiac failure congestive [Unknown]
  - Myocardial infarction [Unknown]
  - Hypertensive heart disease [Unknown]
  - Cardiac failure [Unknown]

NARRATIVE: CASE EVENT DATE: 20160222
